FAERS Safety Report 8838249 (Version 1)
Quarter: 2012Q4

REPORT INFORMATION
  Report Type: 
  Country: US (occurrence: US)
  Receive Date: 20121012
  Receipt Date: 20121012
  Transmission Date: 20130627
  Serious: No
  Sender: FDA-Public Use
  Company Number: US-PFIZER INC-2012253351

PATIENT
  Sex: Female

DRUGS (2)
  1. LIPITOR [Suspect]
     Dosage: UNK
     Dates: end: 2012
  2. LIPITOR [Suspect]
     Dosage: UNK
     Dates: start: 20121010

REACTIONS (3)
  - Myalgia [Unknown]
  - Chills [Unknown]
  - Pyrexia [Unknown]
